FAERS Safety Report 6465416-0 (Version None)
Quarter: 2009Q4

REPORT INFORMATION
  Report Type: 
  Country: None (occurrence: None)
  Receive Date: 20091201
  Receipt Date: 20090602
  Transmission Date: 20100525
  Serious: No
  Sender: FDA-Public Use
  Company Number: PR-AMGEN-KDL305957

PATIENT
  Sex: Male
  Weight: 67.6 kg

DRUGS (3)
  1. ENBREL [Suspect]
     Indication: PSORIATIC ARTHROPATHY
     Route: 058
     Dates: start: 20050207
  2. LIPITOR [Concomitant]
  3. CELEBREX [Concomitant]

REACTIONS (3)
  - MIGRAINE [None]
  - PSORIASIS [None]
  - STAPHYLOCOCCAL INFECTION [None]
